FAERS Safety Report 5314421-6 (Version None)
Quarter: 2007Q2

REPORT INFORMATION
  Report Type: 
  Country: None (occurrence: None)
  Receive Date: 20070430
  Receipt Date: 20070430
  Transmission Date: 20071010
  Serious: No
  Sender: FDA-Public Use
  Company Number: None

PATIENT
  Sex: Female
  Weight: 102.5129 kg

DRUGS (2)
  1. ZESTORETIC [Suspect]
     Indication: HYPERTENSION
     Dosage: 20/25 1 PO Q DAY 1 PO Q DAILY PO
     Route: 048
     Dates: start: 19960601, end: 19970701
  2. LISINOPRIL [Suspect]
     Indication: HYPERTENSION
     Dosage: 20/25  1 PO Q DAY  1 PO Q DAILY PO
     Dates: start: 19960601, end: 19970701

REACTIONS (1)
  - HEADACHE [None]
